FAERS Safety Report 9188746 (Version 6)
Quarter: 2013Q2

REPORT INFORMATION
  Report Type: Spontaneous
  Country: GB (occurrence: GB)
  Receive Date: 20130326
  Receipt Date: 20130610
  Transmission Date: 20140414
  Serious: Yes (Death, Disabling, Other)
  Sender: FDA-Public Use
  Company Number: GB-ELI_LILLY_AND_COMPANY-GB201303004644

PATIENT
  Age: 58 Year
  Sex: Female
  Weight: 72 kg

DRUGS (8)
  1. CYMBALTA [Suspect]
     Indication: DIABETIC NEUROPATHY
     Dosage: 60 MG, QD
     Route: 048
     Dates: start: 20061019
  2. FERROUS SULFATE [Concomitant]
     Dosage: 200 MG, BID
  3. OMEPRAZOLE [Concomitant]
     Dosage: 20 MG, QD
  4. RAMIPRIL [Concomitant]
     Dosage: 10 MG, QD
  5. SIMVASTATIN [Concomitant]
     Dosage: 40 MG, QD
  6. SULPIRIDE [Concomitant]
     Dosage: 200 MG, BID
  7. THIAMINE [Concomitant]
     Dosage: 100 MG, UNK
  8. VITAMIN B COMPLEX [Concomitant]
     Dosage: UNK, BID

REACTIONS (2)
  - Toxicity to various agents [Fatal]
  - Hepatic cirrhosis [Unknown]
